FAERS Safety Report 6034453-2 (Version None)
Quarter: 2009Q1

REPORT INFORMATION
  Report Type: 
  Country: None (occurrence: None)
  Receive Date: 20090108
  Receipt Date: 20081212
  Transmission Date: 20090719
  Serious: Yes (Other)
  Sender: FDA-Public Use
  Company Number: CIO08020591

PATIENT
  Age: 78 Year
  Sex: Female

DRUGS (5)
  1. NYQUIL COLD/FLU, ALCOHOL 10% PSEUDOEPHEDRINE FREE, CHERRY FLVR(PARACET [Suspect]
     Indication: OROPHARYNGEAL PAIN
     Dosage: 30 ML, 1 ONLY FOR 1 DAY, ORAL
     Route: 048
     Dates: start: 20081210, end: 20081210
  2. NYQUIL COLD/FLU, ALCOHOL 10% PSEUDOEPHEDRINE FREE, CHERRY FLVR(PARACET [Suspect]
     Indication: SINUS CONGESTION
     Dosage: 30 ML, 1 ONLY FOR 1 DAY, ORAL
     Route: 048
     Dates: start: 20081210, end: 20081210
  3. LEVOTHYROXINE SODIUM [Concomitant]
  4. GLIMEPIRIDE [Concomitant]
  5. NEXIUM [Concomitant]

REACTIONS (13)
  - BLOOD PRESSURE INCREASED [None]
  - CHILLS [None]
  - DYSPHAGIA [None]
  - ERYTHEMA [None]
  - FEELING ABNORMAL [None]
  - HYPERSENSITIVITY [None]
  - MALAISE [None]
  - OROPHARYNGEAL PAIN [None]
  - PHARYNGEAL OEDEMA [None]
  - PRURITUS [None]
  - RASH GENERALISED [None]
  - SWELLING FACE [None]
  - THROAT TIGHTNESS [None]
